FAERS Safety Report 8472424-7 (Version None)
Quarter: 2012Q2

REPORT INFORMATION
  Report Type: 
  Country: None (occurrence: None)
  Receive Date: 20120627
  Receipt Date: 20110922
  Transmission Date: 20120825
  Serious: No
  Sender: FDA-Public Use
  Company Number: US-AMGEN-USASP2011050131

PATIENT
  Age: 91 Year
  Sex: Male

DRUGS (9)
  1. PROCRIT [Suspect]
     Indication: PRODUCT USED FOR UNKNOWN INDICATION
     Dosage: 40000 IU, QWK
  2. ZOCOR [Concomitant]
     Dosage: 40 MG, QD
  3. LASIX [Concomitant]
     Dosage: 40 MG, QD
  4. FLOMAX [Concomitant]
     Dosage: 0.4 MG, QD
  5. ASPIRIN [Concomitant]
     Dosage: 81 MG, QD
  6. LISINOPRIL [Concomitant]
     Dosage: 5 MG, QD
  7. ZEMPLAR [Concomitant]
     Dosage: 1 MUG, QD
  8. PRANDIN                            /00882701/ [Concomitant]
     Dosage: 0.5 MG, TID
  9. ISOSORBIDE MONONITRATE [Concomitant]
     Dosage: 60 MG, QD

REACTIONS (1)
  - INJECTION SITE PAIN [None]
